FAERS Safety Report 9400317 (Version 1)
Quarter: 2013Q3

REPORT INFORMATION
  Report Type: Spontaneous
  Country: US (occurrence: US)
  Receive Date: 20130715
  Receipt Date: 20130715
  Transmission Date: 20140515
  Serious: No
  Sender: FDA-Public Use
  Company Number: US-BAUSCH-BL-2013-002671

PATIENT
  Age: 66 Year
  Sex: Male

DRUGS (2)
  1. LATANOPROST OPHTHALMIC SOLUTION 0.005% [Suspect]
     Indication: DEVELOPMENTAL GLAUCOMA
     Dosage: ONE DROP INTO RIGHT EYE AT BEDTIME
     Route: 047
     Dates: start: 201303
  2. TIMOLOL MALEATE [Concomitant]
     Indication: DEVELOPMENTAL GLAUCOMA

REACTIONS (2)
  - Drug ineffective [Not Recovered/Not Resolved]
  - Eye swelling [Not Recovered/Not Resolved]
